FAERS Safety Report 24722232 (Version 5)
Quarter: 2025Q1

REPORT INFORMATION
  Report Type: Spontaneous
  Country: US (occurrence: US)
  Receive Date: 20241211
  Receipt Date: 20250304
  Transmission Date: 20250409
  Serious: No
  Sender: PFIZER
  Company Number: US-PFIZER INC-202400317079

PATIENT
  Age: 14 Year
  Sex: Male
  Weight: 52.608 kg

DRUGS (2)
  1. GENOTROPIN [Suspect]
     Active Substance: SOMATROPIN
     Indication: Growth hormone deficiency
     Dosage: 2.4 MG, DAILY, 3.6 ML
     Route: 058
     Dates: start: 2023
  2. GENOTROPIN [Suspect]
     Active Substance: SOMATROPIN
     Dosage: 2.8 MG, DAILY
     Route: 058

REACTIONS (3)
  - Device leakage [Unknown]
  - Liquid product physical issue [Unknown]
  - Drug dose omission by device [Unknown]
